FAERS Safety Report 19559555 (Version 1)
Quarter: 2021Q3

REPORT INFORMATION
  Report Type: Spontaneous
  Country: US (occurrence: US)
  Receive Date: 20210714
  Receipt Date: 20210714
  Transmission Date: 20211014
  Serious: No
  Sender: FDA-Public Use
  Company Number: US-SK LIFE SCIENCE, INC-SKPVG-2020-000030

PATIENT

DRUGS (5)
  1. XCOPRI [Suspect]
     Active Substance: CENOBAMATE
     Indication: EPILEPSY
     Dosage: 25 MILLIGRAM, ONCE A DAY BEDTIME
     Route: 048
     Dates: start: 20200629
  2. BRIVIACT [Concomitant]
     Active Substance: BRIVARACETAM
     Indication: PRODUCT USED FOR UNKNOWN INDICATION
     Dosage: 2 PILLS, BID STARTED ABOUT 2 YEARS AGO
     Route: 065
  3. CLOBAZAM. [Concomitant]
     Active Substance: CLOBAZAM
     Indication: PRODUCT USED FOR UNKNOWN INDICATION
     Dosage: 3 TAB, BID ABOUT 3 YEARS
     Route: 065
  4. XCOPRI [Suspect]
     Active Substance: CENOBAMATE
     Dosage: 12.5 MILLIGRAM, QD (ONCE IN THE MORNING)
     Route: 048
     Dates: start: 20200616
  5. ALENDRONATE [Concomitant]
     Active Substance: ALENDRONATE SODIUM
     Indication: PRODUCT USED FOR UNKNOWN INDICATION
     Dosage: 70 MILLIGRAM, QWK
     Route: 065

REACTIONS (3)
  - Fatigue [Not Recovered/Not Resolved]
  - Abnormal dreams [Unknown]
  - Insomnia [Unknown]

NARRATIVE: CASE EVENT DATE: 20200629
